FAERS Safety Report 21522790 (Version 1)
Quarter: 2022Q4

REPORT INFORMATION
  Report Type: Report from Study
  Country: US (occurrence: US)
  Receive Date: 20221029
  Receipt Date: 20221029
  Transmission Date: 20230113
  Serious: Yes (Other)
  Sender: FDA-Public Use
  Company Number: US-ABBVIE-4178887

PATIENT
  Age: 52 Year
  Sex: Female

DRUGS (4)
  1. HUMIRA [Suspect]
     Active Substance: ADALIMUMAB
     Indication: Psoriatic arthropathy
     Dosage: CITRATE FREE?FORM STRENGTH: 40 MG
     Route: 058
  2. Moderna [Concomitant]
     Indication: COVID-19 immunisation
     Dosage: FREQUENCY 1 IN ONCE?1ST DOSE
     Route: 030
     Dates: start: 20220304, end: 20220304
  3. Moderna [Concomitant]
     Indication: COVID-19 immunisation
     Dosage: FREQUENCY 1 IN ONCE?2ND DOSE
     Route: 030
     Dates: start: 20210405, end: 20210405
  4. Moderna [Concomitant]
     Indication: COVID-19 immunisation
     Dosage: FREQUENCY 1 IN ONCE?3RD DOSE
     Route: 030
     Dates: start: 20220502, end: 20220502

REACTIONS (3)
  - Joint effusion [Not Recovered/Not Resolved]
  - Back pain [Not Recovered/Not Resolved]
  - Spinal operation [Unknown]

NARRATIVE: CASE EVENT DATE: 20220801
